FAERS Safety Report 5268654-8 (Version None)
Quarter: 2007Q1

REPORT INFORMATION
  Report Type: 
  Country: None (occurrence: None)
  Receive Date: 20070315
  Receipt Date: 20070315
  Transmission Date: 20070707
  Serious: Yes (Hospitalization)
  Sender: FDA-Public Use
  Company Number: None

PATIENT
  Sex: Female
  Weight: 57 kg

DRUGS (2)
  1. CARBOPLATIN [Suspect]
     Dosage: 794 MG
  2. TAXOL [Suspect]
     Dosage: 275 MG

REACTIONS (4)
  - ANAEMIA [None]
  - NEUTROPHIL COUNT DECREASED [None]
  - RECTAL HAEMORRHAGE [None]
  - WHITE BLOOD CELL COUNT DECREASED [None]
